FAERS Safety Report 4383768-2 (Version None)
Quarter: 2004Q2

REPORT INFORMATION
  Report Type: 
  Country: None (occurrence: None)
  Receive Date: 20040623
  Receipt Date: 20020516
  Transmission Date: 20050107
  Serious: Yes (Hospitalization)
  Sender: FDA-Public Use
  Company Number: US-MERCK-0205USA02060

PATIENT
  Age: 54 Year
  Sex: Male
  Weight: 114 kg

DRUGS (4)
  1. DARVOCET-N 100 [Concomitant]
     Indication: ARTHRALGIA
     Route: 065
     Dates: start: 20010101
  2. DARVOCET-N 100 [Concomitant]
     Indication: OSTEOARTHRITIS
     Route: 065
     Dates: start: 20010101
  3. VIOXX [Suspect]
     Indication: ARTHRALGIA
     Route: 048
     Dates: start: 20000101
  4. COUMADIN [Concomitant]
     Route: 065
     Dates: start: 20000101

REACTIONS (19)
  - AORTIC CALCIFICATION [None]
  - CEREBRAL ARTERY EMBOLISM [None]
  - DEEP VEIN THROMBOSIS [None]
  - DILATATION ATRIAL [None]
  - DIZZINESS [None]
  - ENCEPHALOPATHY [None]
  - HAEMORRHAGIC CEREBRAL INFARCTION [None]
  - HEART VALVE CALCIFICATION [None]
  - HYDROCEPHALUS [None]
  - HYPERTENSION [None]
  - INJURY [None]
  - LIPIDS INCREASED [None]
  - NAUSEA [None]
  - OSTEOARTHRITIS [None]
  - PERICARDIAL EFFUSION [None]
  - RHEUMATOID ARTHRITIS [None]
  - TRICUSPID VALVE INCOMPETENCE [None]
  - VERTIGO POSITIONAL [None]
  - VESTIBULAR DISORDER [None]
